FAERS Safety Report 10046782 (Version 1)
Quarter: 2014Q1

REPORT INFORMATION
  Report Type: Spontaneous
  Country: BR (occurrence: BR)
  Receive Date: 20140331
  Receipt Date: 20140331
  Transmission Date: 20141002
  Serious: Yes (Other)
  Sender: FDA-Public Use
  Company Number: BR-BAYER-2014-044660

PATIENT
  Age: 36 Year
  Sex: Female
  Weight: 52 kg

DRUGS (4)
  1. YASMIN [Suspect]
     Indication: CONTRACEPTION
     Dosage: UNK
     Route: 048
     Dates: start: 2006
  2. YASMIN [Suspect]
     Indication: PREMENSTRUAL SYNDROME
  3. YASMIN [Suspect]
     Indication: MENSTRUAL CYCLE MANAGEMENT
  4. CYMBALTA [Concomitant]
     Indication: DEPRESSION
     Dosage: 1 DF, QD
     Route: 048
     Dates: start: 2011

REACTIONS (3)
  - Oral surgery [None]
  - Metrorrhagia [Recovered/Resolved]
  - Abnormal withdrawal bleeding [Not Recovered/Not Resolved]
